FAERS Safety Report 10329809 (Version 3)
Quarter: 2014Q4

REPORT INFORMATION
  Report Type: Spontaneous
  Country: JP (occurrence: JP)
  Receive Date: 20140721
  Receipt Date: 20141015
  Transmission Date: 20150528
  Serious: Yes (Death)
  Sender: FDA-Public Use
  Company Number: JP-SA-2014SA091668

PATIENT
  Age: 63 Year
  Sex: Female
  Weight: 61 kg

DRUGS (42)
  1. CAMPTO [Suspect]
     Active Substance: IRINOTECAN
     Indication: PANCREATIC CARCINOMA
     Route: 041
     Dates: start: 20140624, end: 20140624
  2. 5-FU [Suspect]
     Active Substance: FLUOROURACIL
     Indication: PANCREATIC CARCINOMA
     Route: 040
     Dates: start: 20140624, end: 20140624
  3. LOXONIN [Concomitant]
     Active Substance: LOXOPROFEN SODIUM
     Dosage: TAPE (INCLUDING POULTICE).
     Dates: start: 20140630
  4. GRAN [Concomitant]
     Active Substance: FILGRASTIM
     Dates: start: 20140703
  5. ADRENALINE [Concomitant]
     Active Substance: EPINEPHRINE
     Dates: start: 20140703
  6. DECADRON [Concomitant]
     Active Substance: DEXAMETHASONE
     Dosage: 2
  7. PRIMPERAN [Concomitant]
     Active Substance: METOCLOPRAMIDE HYDROCHLORIDE
     Dates: start: 20140625
  8. MYSLEE [Concomitant]
     Active Substance: ZOLPIDEM TARTRATE
     Dates: start: 20140701
  9. ROCURONIUM BROMIDE. [Concomitant]
     Active Substance: ROCURONIUM BROMIDE
     Dates: start: 20140703
  10. ATARAX-P [Concomitant]
     Active Substance: HYDROXYZINE HYDROCHLORIDE
     Dates: start: 20140624, end: 20140625
  11. ZYPREXA [Concomitant]
     Active Substance: OLANZAPINE
     Dates: start: 20140625, end: 20140626
  12. FUROSEMIDE. [Concomitant]
     Active Substance: FUROSEMIDE
     Dates: start: 20140704
  13. CALCIUM LEVOFOLINATE [Suspect]
     Active Substance: LEVOLEUCOVORIN CALCIUM
     Indication: PANCREATIC CARCINOMA
     Route: 041
     Dates: start: 20140624, end: 20140624
  14. EMEND [Concomitant]
     Active Substance: APREPITANT
     Dates: start: 20140624, end: 20140626
  15. GASCON [Concomitant]
     Active Substance: DIMETHICONE
     Dates: start: 20140625
  16. ALBUMIN [Concomitant]
     Active Substance: ALBUMIN (HUMAN)
     Dates: start: 20140704
  17. KYTRIL [Concomitant]
     Active Substance: GRANISETRON HYDROCHLORIDE
     Dates: start: 20140624, end: 20140625
  18. MAGMITT [Concomitant]
     Active Substance: MAGNESIUM OXIDE
     Dates: start: 20140630, end: 20140701
  19. NOREPINEPHRINE [Concomitant]
     Active Substance: NOREPINEPHRINE\NOREPINEPHRINE BITARTRATE
     Dates: start: 20140703
  20. MEYLON [Concomitant]
     Active Substance: SODIUM BICARBONATE
     Dates: start: 20140703
  21. NOVOLIN R [Concomitant]
     Active Substance: INSULIN HUMAN
     Dates: start: 20140704
  22. ELPLAT [Suspect]
     Active Substance: OXALIPLATIN
     Indication: PANCREATIC CARCINOMA
     Route: 041
     Dates: start: 20140624, end: 20140624
  23. 5-FU [Suspect]
     Active Substance: FLUOROURACIL
     Indication: PANCREATIC CARCINOMA
     Route: 041
     Dates: start: 20140624, end: 20140624
  24. LENDORMIN [Concomitant]
     Active Substance: BROTIZOLAM
     Dates: start: 20140625
  25. TAKEPRON [Concomitant]
     Active Substance: LANSOPRAZOLE
     Dates: start: 20140625
  26. INOVAN [Concomitant]
     Active Substance: DOPAMINE HYDROCHLORIDE
     Dates: start: 20140703
  27. SOLU-MEDROL [Concomitant]
     Active Substance: METHYLPREDNISOLONE SODIUM SUCCINATE
     Dates: start: 20140703
  28. PROPOFOL. [Concomitant]
     Active Substance: PROPOFOL
     Dates: start: 20140703
  29. AMINO ACIDS NOS/ELECTROLYTES NOS/MALIC ACID [Concomitant]
     Dates: start: 20140625
  30. LASIX [Concomitant]
     Active Substance: FUROSEMIDE
     Dates: start: 20140625
  31. LOXONIN [Concomitant]
     Active Substance: LOXOPROFEN SODIUM
     Dates: start: 20140625
  32. SOSEGON [Concomitant]
     Active Substance: PENTAZOCINE
     Dates: start: 20140702
  33. TRANSAMIN [Concomitant]
     Active Substance: TRANEXAMIC ACID
     Dates: start: 20140703
  34. OMEPRAL [Concomitant]
     Active Substance: OMEPRAZOLE
     Dates: start: 20140703
  35. FENTANYL. [Concomitant]
     Active Substance: FENTANYL
     Dates: start: 20140703
  36. VENOGLOBULIN [Concomitant]
     Active Substance: HUMAN IMMUNOGLOBULIN G
     Dates: start: 20140703
  37. PLATELETS [Concomitant]
     Active Substance: HUMAN PLATELET, ALLOGENIC
     Dates: start: 20140703
  38. SERENACE [Concomitant]
     Active Substance: HALOPERIDOL
     Dates: start: 20140624, end: 20140625
  39. ALDACTONE [Concomitant]
     Active Substance: SPIRONOLACTONE
     Dates: start: 20140625
  40. GLYCERIN. [Concomitant]
     Active Substance: GLYCERIN
     Dates: start: 20140628
  41. ROPION [Concomitant]
     Active Substance: FLURBIPROFEN AXETIL
     Dates: start: 20140630, end: 20140703
  42. VOLTAREN [Concomitant]
     Active Substance: DICLOFENAC SODIUM
     Dates: start: 20140701, end: 20140702

REACTIONS (11)
  - Pulmonary alveolar haemorrhage [Fatal]
  - Diarrhoea [Not Recovered/Not Resolved]
  - White blood cell count decreased [Fatal]
  - Platelet count decreased [Fatal]
  - Neutrophil count decreased [Fatal]
  - Renal failure [Fatal]
  - Headache [Recovered/Resolved]
  - Malaise [Not Recovered/Not Resolved]
  - Pneumonia [Fatal]
  - Dizziness [Not Recovered/Not Resolved]
  - Nausea [Not Recovered/Not Resolved]

NARRATIVE: CASE EVENT DATE: 2014
